FAERS Safety Report 9018141 (Version 1)
Quarter: 2013Q1

REPORT INFORMATION
  Report Type: Spontaneous
  Country: US (occurrence: None)
  Receive Date: 20130110
  Receipt Date: 20130110
  Transmission Date: 20140127
  Serious: Yes (Hospitalization)
  Sender: FDA-Public Use
  Company Number: None

PATIENT
  Age: 67 Year
  Sex: Male

DRUGS (6)
  1. CEFTIN [Suspect]
     Indication: INFECTION PROPHYLAXIS
     Route: 042
     Dates: start: 20110419, end: 20110421
  2. CEFAZOLIN [Suspect]
     Dates: start: 20110419, end: 20110419
  3. CEFAZOLIN [Concomitant]
  4. VANCOMYCIN [Concomitant]
  5. MERCK V710 STUDY VACCINE OR PLACEBO [Concomitant]
  6. ASA [Concomitant]

REACTIONS (7)
  - Drug-induced liver injury [None]
  - Aspartate aminotransferase increased [None]
  - Alanine aminotransferase increased [None]
  - Blood alkaline phosphatase increased [None]
  - Blood bilirubin increased [None]
  - Atelectasis [None]
  - Pneumonia [None]
